FAERS Safety Report 14931541 (Version 2)
Quarter: 2018Q2

REPORT INFORMATION
  Report Type: Report from Study
  Country: ES (occurrence: ES)
  Receive Date: 20180524
  Receipt Date: 20180613
  Transmission Date: 20180711
  Serious: Yes (Hospitalization)
  Sender: FDA-Public Use
  Company Number: ES-TEVA-2018-ES-897219

PATIENT
  Age: 3 Year
  Sex: Female

DRUGS (11)
  1. ZOVIRAX  400 MG/5 ML SUSPENSION ORAL , 1 FRASCO DE 200 ML [Concomitant]
     Indication: OPPORTUNISTIC INFECTION PROPHYLAXIS
     Route: 048
     Dates: start: 20170627
  2. MESNA (1078A) [Concomitant]
     Active Substance: MESNA
     Indication: PROPHYLAXIS
     Route: 042
     Dates: start: 20171004, end: 20171006
  3. DEXAMETASONE (722A) [Suspect]
     Active Substance: DEXAMETHASONE
     Indication: ACUTE LYMPHOCYTIC LEUKAEMIA
     Route: 042
     Dates: start: 20171002, end: 20171006
  4. CYCLOPHOSPHAMID (120A) [Suspect]
     Active Substance: CYCLOPHOSPHAMIDE
     Indication: ACUTE LYMPHOCYTIC LEUKAEMIA
     Route: 042
     Dates: start: 20171004, end: 20171006
  5. FILGRASTIM (7089A) [Concomitant]
     Active Substance: FILGRASTIM
     Indication: NEUTROPENIA
     Route: 058
     Dates: start: 20171009, end: 20171020
  6. VINCRISTINE [Suspect]
     Active Substance: VINCRISTINE
     Indication: ACUTE LYMPHOCYTIC LEUKAEMIA
     Dosage: 1 MILLIGRAM DAILY;
     Route: 042
     Dates: start: 20171002, end: 20171007
  7. FOLINICO ACIDO (1587A) [Concomitant]
     Active Substance: LEUCOVORIN
     Indication: PROPHYLAXIS
     Route: 042
     Dates: start: 20171005, end: 20171008
  8. METHOTREXATE (418A) [Suspect]
     Active Substance: METHOTREXATE
     Indication: ACUTE LYMPHOCYTIC LEUKAEMIA
     Dosage: 3291 MILLIGRAM DAILY;
     Route: 042
     Dates: start: 20171002, end: 20171003
  9. ONCASPAR [Suspect]
     Active Substance: PEGASPARGASE
     Indication: ACUTE LYMPHOCYTIC LEUKAEMIA
     Dosage: 658.3 IU (INTERNATIONAL UNIT) DAILY;
     Route: 030
     Dates: start: 20171008, end: 20171008
  10. SEPTRIN PEDIATRICO 8 MG/40 MG/ML SUSPENSION ORAL , 1 FRASCO DE 100 ML [Concomitant]
     Active Substance: SULFAMETHOXAZOLE\TRIMETHOPRIM
     Indication: OPPORTUNISTIC INFECTION PROPHYLAXIS
     Route: 048
     Dates: start: 20170627
  11. CITARABINA (124A) [Suspect]
     Active Substance: CYTARABINE
     Indication: ACUTE LYMPHOCYTIC LEUKAEMIA
     Route: 042
     Dates: start: 20171006, end: 20171007

REACTIONS (2)
  - Pancytopenia [Recovered/Resolved]
  - Respiratory tract infection [Recovered/Resolved]

NARRATIVE: CASE EVENT DATE: 20171012
